FAERS Safety Report 6223379-7 (Version None)
Quarter: 2009Q2

REPORT INFORMATION
  Report Type: 
  Country: None (occurrence: None)
  Receive Date: 20090611
  Receipt Date: 20090530
  Transmission Date: 20091009
  Serious: Yes (Death, Hospitalization)
  Sender: FDA-Public Use
  Company Number: CO-ELI_LILLY_AND_COMPANY-CO200906000271

PATIENT
  Age: 80 Year
  Sex: Female

DRUGS (3)
  1. FORTEO [Suspect]
     Indication: OSTEOPOROSIS
     Dosage: 20 UG, DAILY (1/D)
     Route: 058
     Dates: start: 20090508
  2. IBUPROFEN [Concomitant]
     Dosage: UNK, UNKNOWN
     Route: 065
  3. GLUCOSAMINE [Concomitant]
     Dosage: UNK, UNKNOWN
     Route: 065

REACTIONS (7)
  - CHILLS [None]
  - MULTI-ORGAN FAILURE [None]
  - OSTEOARTHROPATHY [None]
  - PAIN IN EXTREMITY [None]
  - PYREXIA [None]
  - SCIATICA [None]
  - SEPSIS [None]
